FAERS Safety Report 8970477 (Version 1)
Quarter: 2012Q4

REPORT INFORMATION
  Report Type: 
  Country: US (occurrence: US)
  Receive Date: 20121218
  Receipt Date: 20121218
  Transmission Date: 20130627
  Serious: No
  Sender: FDA-Public Use
  Company Number: US-GLAXOSMITHKLINE-A0975935A

PATIENT
  Sex: Female

DRUGS (2)
  1. NICORETTE [Suspect]
     Indication: EX-TOBACCO USER
     Route: 062
  2. NICODERM CQ [Suspect]
     Indication: EX-TOBACCO USER
     Route: 062

REACTIONS (4)
  - Oral discomfort [Recovered/Resolved]
  - Glossodynia [Recovered/Resolved]
  - Oral pain [Recovered/Resolved]
  - Abnormal dreams [Recovered/Resolved]
